FAERS Safety Report 5925420-5 (Version None)
Quarter: 2008Q4

REPORT INFORMATION
  Report Type: 
  Country: None (occurrence: None)
  Receive Date: 20081020
  Receipt Date: 20081020
  Transmission Date: 20090506
  Serious: Yes (Life-Threatening, Hospitalization)
  Sender: FDA-Public Use
  Company Number: None

PATIENT
  Age: 50 Year
  Sex: Female
  Weight: 83.0083 kg

DRUGS (2)
  1. AVELOX [Suspect]
     Indication: ABSCESS
     Dosage: 1 TABLET EVERY 24 HOURS PO
     Route: 048
     Dates: start: 20081015, end: 20081015
  2. AVELOX [Suspect]
     Indication: EAR INFECTION
     Dosage: 1 TABLET EVERY 24 HOURS PO
     Route: 048
     Dates: start: 20081015, end: 20081015

REACTIONS (7)
  - DYSPHONIA [None]
  - FEELING ABNORMAL [None]
  - LIP SWELLING [None]
  - SINUS DISORDER [None]
  - SNEEZING [None]
  - URTICARIA [None]
  - WHEEZING [None]
